FAERS Safety Report 5121785-5 (Version None)
Quarter: 2006Q4

REPORT INFORMATION
  Report Type: 
  Country: None (occurrence: None)
  Receive Date: 20061006
  Receipt Date: 20060927
  Transmission Date: 20070319
  Serious: Yes (Hospitalization)
  Sender: FDA-Public Use
  Company Number: IT-ROCHE-464915

PATIENT
  Age: 20 Year
  Sex: Male

DRUGS (2)
  1. ISOTRETINOIN [Suspect]
     Route: 048
  2. RIFAMPIN [Suspect]
     Dosage: INDICATION: PUSTULAR LESIONS ASSOCIATED WITH PAINFUL SUBMANDIBULAR LYMPHADENOPATHY DURATION CLARIFI+
     Route: 065

REACTIONS (7)
  - ABASIA [None]
  - BEDRIDDEN [None]
  - FATIGUE [None]
  - MUSCULAR WEAKNESS [None]
  - MYALGIA [None]
  - MYOPATHY [None]
  - SKIN DISORDER [None]
